FAERS Safety Report 6706870-6 (Version None)
Quarter: 2010Q2

REPORT INFORMATION
  Report Type: 
  Country: None (occurrence: None)
  Receive Date: 20100503
  Receipt Date: 20090220
  Transmission Date: 20101027
  Serious: Yes (Other)
  Sender: FDA-Public Use
  Company Number: BE-BAYER-200911247GPV

PATIENT
  Sex: Female

DRUGS (1)
  1. MIRENA [Suspect]
     Indication: DRUG USE FOR UNKNOWN INDICATION
     Route: 015

REACTIONS (23)
  - ABDOMINAL PAIN LOWER [None]
  - AFFECT LABILITY [None]
  - BLINDNESS [None]
  - COLD SWEAT [None]
  - DANDRUFF [None]
  - DEAFNESS [None]
  - DEPRESSED MOOD [None]
  - DIZZINESS [None]
  - GASTROINTESTINAL DISORDER [None]
  - HEADACHE [None]
  - HEART RATE INCREASED [None]
  - INFLUENZA LIKE ILLNESS [None]
  - MOOD ALTERED [None]
  - NAUSEA [None]
  - NEGATIVE THOUGHTS [None]
  - OCULAR HYPERAEMIA [None]
  - OVARIAN CYST [None]
  - PALPITATIONS [None]
  - PANIC ATTACK [None]
  - SYNCOPE [None]
  - THYROID FUNCTION TEST ABNORMAL [None]
  - VOMITING [None]
  - VULVOVAGINAL PRURITUS [None]
